FAERS Safety Report 9765104 (Version 1)
Quarter: 2013Q4

REPORT INFORMATION
  Report Type: Spontaneous
  Country: US (occurrence: None)
  Receive Date: 20131216
  Receipt Date: 20131216
  Transmission Date: 20140711
  Serious: Yes (Life-Threatening)
  Sender: FDA-Public Use
  Company Number: None

PATIENT
  Age: 30 Year
  Sex: Female
  Weight: 86.18 kg

DRUGS (1)
  1. LIALDA [Suspect]
     Indication: CROHN^S DISEASE
     Dosage: 3 PILLS
     Route: 048
     Dates: start: 20131207, end: 20131207

REACTIONS (5)
  - Lip swelling [None]
  - Local swelling [None]
  - Swollen tongue [None]
  - Dysphagia [None]
  - Throat tightness [None]
